FAERS Safety Report 4996855-2 (Version None)
Quarter: 2006Q2

REPORT INFORMATION
  Report Type: 
  Country: None (occurrence: None)
  Receive Date: 20060509
  Receipt Date: 20051103
  Transmission Date: 20061013
  Serious: Yes (Other)
  Sender: FDA-Public Use
  Company Number: PHEH2005US12185

PATIENT
  Age: 69 Year
  Sex: Female

DRUGS (3)
  1. ZOMETA [Suspect]
     Indication: BREAST CANCER METASTATIC
     Dates: start: 20021001, end: 20051001
  2. AREDIA [Suspect]
     Indication: BREAST CANCER METASTATIC
     Dates: start: 19990901, end: 20020901
  3. NAVELBINE [Concomitant]

REACTIONS (9)
  - BONE DISORDER [None]
  - IMPAIRED HEALING [None]
  - ORAL SOFT TISSUE DISORDER [None]
  - OSTEITIS [None]
  - OSTEOMYELITIS [None]
  - OSTEONECROSIS [None]
  - SOFT TISSUE INFECTION [None]
  - TOOTH EXTRACTION [None]
  - WOUND TREATMENT [None]
